FAERS Safety Report 11451584 (Version 30)
Quarter: 2017Q1

REPORT INFORMATION
  Report Type: Report from Study
  Country: CA (occurrence: CA)
  Receive Date: 20150903
  Receipt Date: 20170327
  Transmission Date: 20170428
  Serious: Yes (Other)
  Sender: FDA-Public Use
  Company Number: CA-ROCHE-1629756

PATIENT
  Age: 62 Year
  Sex: Female
  Weight: 87 kg

DRUGS (14)
  1. ACTEMRA [Suspect]
     Active Substance: TOCILIZUMAB
     Indication: RHEUMATOID ARTHRITIS
     Route: 042
     Dates: start: 20150731
  2. ACTEMRA [Suspect]
     Active Substance: TOCILIZUMAB
     Route: 042
     Dates: start: 20151027
  3. ACTEMRA [Suspect]
     Active Substance: TOCILIZUMAB
     Route: 042
     Dates: start: 20160120
  4. PREDNISONE. [Suspect]
     Active Substance: PREDNISONE
     Indication: PRODUCT USED FOR UNKNOWN INDICATION
     Route: 065
  5. PANTOLOC [Concomitant]
     Active Substance: PANTOPRAZOLE SODIUM
  6. PREDNISONE. [Suspect]
     Active Substance: PREDNISONE
     Route: 065
  7. ATENOLOL. [Concomitant]
     Active Substance: ATENOLOL
  8. CITALOPRAM [Concomitant]
     Active Substance: CITALOPRAM HYDROBROMIDE
  9. OXYNEO [Concomitant]
     Active Substance: OXYCODONE
  10. NOVOLIN NPH [Concomitant]
     Active Substance: INSULIN HUMAN
  11. OXYCODONE [Concomitant]
     Active Substance: OXYCODONE
  12. GLICLAZIDE [Concomitant]
     Active Substance: GLICLAZIDE
  13. LIPITOR [Concomitant]
     Active Substance: ATORVASTATIN CALCIUM
  14. LYRICA [Concomitant]
     Active Substance: PREGABALIN

REACTIONS (32)
  - Neoplasm malignant [Unknown]
  - Drug ineffective [Unknown]
  - Blood pressure diastolic abnormal [Unknown]
  - Cough [Recovered/Resolved]
  - Pericardial effusion [Recovered/Resolved]
  - Oxygen saturation decreased [Unknown]
  - Sinus congestion [Recovered/Resolved]
  - Influenza [Unknown]
  - Weight decreased [Unknown]
  - Oxygen saturation decreased [Unknown]
  - Weight increased [Not Recovered/Not Resolved]
  - Fluid retention [Unknown]
  - Abdominal distension [Not Recovered/Not Resolved]
  - Gastrointestinal disorder [Not Recovered/Not Resolved]
  - Fatigue [Not Recovered/Not Resolved]
  - Arthralgia [Not Recovered/Not Resolved]
  - Dry skin [Unknown]
  - Wound [Not Recovered/Not Resolved]
  - Toothache [Not Recovered/Not Resolved]
  - Rhinorrhoea [Recovered/Resolved]
  - Nasopharyngitis [Recovering/Resolving]
  - Scar [Unknown]
  - Dyspnoea [Unknown]
  - Pulmonary oedema [Recovered/Resolved]
  - Respiratory rate increased [Unknown]
  - Dyspnoea [Not Recovered/Not Resolved]
  - Wound [Not Recovered/Not Resolved]
  - Lung disorder [Unknown]
  - Blood pressure fluctuation [Unknown]
  - Lung neoplasm malignant [Not Recovered/Not Resolved]
  - Blood pressure increased [Unknown]
  - Skin fissures [Recovering/Resolving]

NARRATIVE: CASE EVENT DATE: 20150901
